FAERS Safety Report 20212561 (Version 3)
Quarter: 2022Q1

REPORT INFORMATION
  Report Type: Report from Study
  Country: US (occurrence: US)
  Receive Date: 20211221
  Receipt Date: 20220228
  Transmission Date: 20220423
  Serious: Yes (Hospitalization, Disabling)
  Sender: FDA-Public Use
  Company Number: US-NOVARTISPH-NVSC2021US286079

PATIENT
  Age: 20 Year
  Sex: Female

DRUGS (4)
  1. ADAKVEO [Suspect]
     Active Substance: CRIZANLIZUMAB-TMCA
     Indication: Sickle cell disease
     Dosage: UNK
     Route: 042
     Dates: start: 20200922, end: 20200922
  2. ADAKVEO [Suspect]
     Active Substance: CRIZANLIZUMAB-TMCA
     Dosage: UNK
     Route: 042
     Dates: start: 20201222, end: 20201222
  3. ADAKVEO [Suspect]
     Active Substance: CRIZANLIZUMAB-TMCA
     Dosage: UNK
     Route: 042
     Dates: start: 20211122, end: 20211122
  4. ADAKVEO [Suspect]
     Active Substance: CRIZANLIZUMAB-TMCA
     Dosage: UNK
     Route: 042
     Dates: start: 20220221, end: 20220221

REACTIONS (3)
  - Acute chest syndrome [Recovered/Resolved]
  - Pain [Not Recovered/Not Resolved]
  - Acute chest syndrome [Recovered/Resolved]

NARRATIVE: CASE EVENT DATE: 20211018
